FAERS Safety Report 20380879 (Version 1)
Quarter: 2022Q1

REPORT INFORMATION
  Report Type: Spontaneous
  Country: FR (occurrence: FR)
  Receive Date: 20220127
  Receipt Date: 20220127
  Transmission Date: 20220423
  Serious: Yes (Other)
  Sender: FDA-Public Use
  Company Number: FR-SA-SAC20220112000791

PATIENT
  Age: 17 Year
  Sex: Female

DRUGS (10)
  1. IBUPROFEN [Suspect]
     Active Substance: IBUPROFEN
     Indication: Pain
     Dosage: UNK
     Route: 065
  2. KETOPROFEN [Suspect]
     Active Substance: KETOPROFEN
     Indication: Product used for unknown indication
     Dosage: UNK
     Route: 065
  3. TRAMADOL [Suspect]
     Active Substance: TRAMADOL
     Indication: Pain
     Dosage: UNK
     Route: 065
  4. ACUPAN [Suspect]
     Active Substance: NEFOPAM HYDROCHLORIDE
     Indication: Pain
     Dosage: UNK
     Route: 065
  5. PRIMPERAN [Suspect]
     Active Substance: METOCLOPRAMIDE HYDROCHLORIDE
     Indication: Vomiting
     Dosage: UNK
     Route: 065
  6. PRIMPERAN [Suspect]
     Active Substance: METOCLOPRAMIDE HYDROCHLORIDE
     Indication: Nausea
  7. TIAPROFENIC ACID [Suspect]
     Active Substance: TIAPROFENIC ACID
     Indication: Vomiting
     Dosage: UNK
     Route: 065
     Dates: start: 202112
  8. TIAPROFENIC ACID [Suspect]
     Active Substance: TIAPROFENIC ACID
     Indication: Nausea
  9. VOGALENE [Suspect]
     Active Substance: METOPIMAZINE
     Indication: Vomiting
     Dosage: 1 DOSAGE FORM
     Route: 065
     Dates: start: 20220105, end: 20220105
  10. VOGALENE [Suspect]
     Active Substance: METOPIMAZINE
     Indication: Nausea

REACTIONS (9)
  - Vision blurred [Recovered/Resolved]
  - Vomiting [Recovered/Resolved]
  - Pain [Recovered/Resolved]
  - Nausea [Recovered/Resolved]
  - Seizure [Recovered/Resolved]
  - Fall [Recovered/Resolved]
  - Headache [Recovered/Resolved]
  - Nervous system disorder [Recovered/Resolved]
  - Condition aggravated [Recovered/Resolved]
